FAERS Safety Report 7444197-8 (Version None)
Quarter: 2011Q2

REPORT INFORMATION
  Report Type: 
  Country: None (occurrence: None)
  Receive Date: 20110429
  Receipt Date: 20100407
  Transmission Date: 20111010
  Serious: No
  Sender: FDA-Public Use
  Company Number: US-BAYER-201019856NA

PATIENT
  Age: 39 Year
  Sex: Female

DRUGS (3)
  1. YASMIN [Concomitant]
     Indication: PREMENSTRUAL SYNDROME
     Dosage: UNK
     Dates: end: 20100201
  2. YAZ [Suspect]
     Indication: PREMENSTRUAL SYNDROME
     Dosage: UNK
     Dates: start: 20100201, end: 20100201
  3. YASMIN [Concomitant]
     Dosage: UNK

REACTIONS (1)
  - GENITAL HAEMORRHAGE [None]
